FAERS Safety Report 4528599-5 (Version None)
Quarter: 2004Q4

REPORT INFORMATION
  Report Type: 
  Country: None (occurrence: None)
  Receive Date: 20041216
  Receipt Date: 20041206
  Transmission Date: 20050328
  Serious: Yes (Hospitalization, Other)
  Sender: FDA-Public Use
  Company Number: JP-BRISTOL-MYERS SQUIBB COMPANY-12789616

PATIENT
  Age: 43 Year
  Sex: Male

DRUGS (6)
  1. ZERIT [Suspect]
     Indication: HIV INFECTION
     Route: 048
     Dates: start: 20010221, end: 20020423
  2. STOCRIN CAPS [Suspect]
     Indication: HIV INFECTION
     Route: 048
     Dates: start: 20010221
  3. EPIVIR [Suspect]
     Indication: HIV INFECTION
     Route: 048
     Dates: start: 20010221
  4. ZIDOVUDINE [Suspect]
     Indication: HIV INFECTION
     Route: 048
     Dates: start: 20020424, end: 20030213
  5. ZIAGEN [Suspect]
     Indication: HIV INFECTION
     Route: 048
     Dates: start: 20030214
  6. BAKTAR [Concomitant]
     Dates: start: 20010210, end: 20020325

REACTIONS (6)
  - ANAEMIA [None]
  - HERPES ZOSTER [None]
  - HYPERLIPIDAEMIA [None]
  - HYPOAESTHESIA [None]
  - KAPOSI'S SARCOMA [None]
  - LYMPHADENOPATHY [None]
